FAERS Safety Report 4860978-9 (Version None)
Quarter: 2005Q4

REPORT INFORMATION
  Report Type: 
  Country: None (occurrence: None)
  Receive Date: 20051220
  Receipt Date: 20051121
  Transmission Date: 20060501
  Serious: Yes (Other)
  Sender: FDA-Public Use
  Company Number: PHFR2005GB03826

PATIENT
  Age: 92 Year
  Sex: Male

DRUGS (4)
  1. ZOMETA [Suspect]
     Indication: METASTASES TO BONE
     Dosage: 4 MG, QW4
     Route: 042
     Dates: start: 20040208, end: 20051019
  2. FLUTAMIDE [Concomitant]
     Dosage: 250 MG, TID
     Route: 065
  3. THYROXINE [Concomitant]
     Dosage: 100 MG, QD
     Route: 065
  4. PARACETAMOL [Concomitant]
     Dosage: 500 MG, QID/PRN
     Route: 065

REACTIONS (3)
  - JAW DISORDER [None]
  - OSTEONECROSIS [None]
  - TOOTH EXTRACTION [None]
